FAERS Safety Report 4940417-X (Version None)
Quarter: 2006Q1

REPORT INFORMATION
  Report Type: 
  Country: None (occurrence: None)
  Receive Date: 20060131
  Receipt Date: 20051215
  Transmission Date: 20060701
  Serious: No
  Sender: FDA-Public Use
  Company Number: 200520512US

PATIENT
  Age: 50 Year
  Sex: Female

DRUGS (3)
  1. KETEK [Suspect]
     Indication: PHARYNGOLARYNGEAL PAIN
     Dosage: 800 MG PO
     Route: 048
     Dates: start: 20051207
  2. ALDACTONE [Concomitant]
  3. IRON [Concomitant]

REACTIONS (2)
  - NERVOUSNESS [None]
  - TREMOR [None]
